FAERS Safety Report 4516885-4 (Version None)
Quarter: 2004Q4

REPORT INFORMATION
  Report Type: 
  Country: None (occurrence: None)
  Receive Date: 20041020
  Receipt Date: 20040917
  Transmission Date: 20050328
  Serious: No
  Sender: FDA-Public Use
  Company Number: 2004-120389-NL

PATIENT
  Age: 32 Year
  Sex: Female
  Weight: 65.9 kg

DRUGS (2)
  1. NUVARING [Suspect]
     Indication: CONTRACEPTION
     Dosage: DF DAILY VAGINAL
     Route: 067
     Dates: start: 20040411
  2. ZOMIG [Concomitant]

REACTIONS (2)
  - MENORRHAGIA [None]
  - METRORRHAGIA [None]
